FAERS Safety Report 8555674-0 (Version None)
Quarter: 2012Q3

REPORT INFORMATION
  Report Type: 
  Country: None (occurrence: None)
  Receive Date: 20120801
  Receipt Date: 20120718
  Transmission Date: 20120928
  Serious: Yes (Hospitalization)
  Sender: FDA-Public Use
  Company Number: IT-MYLANLABS-2012S1014971

PATIENT
  Age: 91 Year
  Sex: Female

DRUGS (10)
  1. ENAP-HL                            /06436201/ [Concomitant]
     Indication: HYPERTENSION
     Dosage: ENALAPRIL 20MG/HYDROCHLOROTHIAZIDE 12.5MG ONCE/DAY
     Route: 048
  2. LANSOPRAZOLE [Concomitant]
     Dosage: 30MG
     Route: 065
  3. LEVOFLOXACIN [Interacting]
     Indication: BACTERIAL INFECTION
     Dosage: 500 MG/DAY
     Route: 048
  4. ENALAPRIL MALEATE [Concomitant]
     Indication: HYPERTENSION
     Route: 065
  5. BUPRENORPHINE [Interacting]
     Indication: PAIN
     Dosage: 35 MICROG/HOUR
     Route: 062
  6. NADROPARIN CALCIUM [Interacting]
     Dosage: 3800 IU/DAY
     Route: 058
  7. METFORMIN HCL [Interacting]
     Indication: TYPE 2 DIABETES MELLITUS
     Dosage: 2.5MG GLIBENCLAMIDE/400MG METFORMIN 3 TIMES DAILY
     Route: 048
  8. TRAMADOL HYDROCHLORIDE [Suspect]
     Dosage: AS REQUIRED
     Route: 065
  9. ASPIRIN [Concomitant]
     Route: 048
  10. INSULIN [Concomitant]
     Route: 065

REACTIONS (2)
  - HYPOGLYCAEMIA [None]
  - DRUG INTERACTION [None]
